FAERS Safety Report 8215027-1 (Version None)
Quarter: 2012Q1

REPORT INFORMATION
  Report Type: 
  Country: None (occurrence: None)
  Receive Date: 20120316
  Receipt Date: 20120302
  Transmission Date: 20120608
  Serious: Yes (Other)
  Sender: FDA-Public Use
  Company Number: AU-MYLANLABS-2012S1005013

PATIENT
  Age: 25 Year
  Sex: Female

DRUGS (4)
  1. CITALOPRAM HYDROBROMIDE [Suspect]
     Indication: MARITAL PROBLEM
     Route: 065
  2. VENLAFAXINE [Interacting]
     Indication: DEPRESSION
     Route: 065
  3. MARIJUANA [Interacting]
     Dosage: HEAVY USER
     Route: 065
  4. DIAZEPAM [Suspect]
     Indication: AKATHISIA
     Route: 065

REACTIONS (3)
  - DRUG DEPENDENCE [None]
  - DRUG INTERACTION [None]
  - AKATHISIA [None]
